FAERS Safety Report 10676082 (Version 1)
Quarter: 2014Q4

REPORT INFORMATION
  Report Type: Spontaneous
  Country: IR (occurrence: IR)
  Receive Date: 20141225
  Receipt Date: 20141225
  Transmission Date: 20150529
  Serious: Yes (Other)
  Sender: FDA-Public Use
  Company Number: IR-CIPLA LTD.-2014IR02734

PATIENT

DRUGS (5)
  1. IRINOTECAN [Suspect]
     Active Substance: IRINOTECAN
     Indication: ADULT T-CELL LYMPHOMA/LEUKAEMIA
     Dosage: 65 MG/M2 ON DAYS 1 AND 8
     Route: 042
  2. DEXAMETHASONE. [Suspect]
     Active Substance: DEXAMETHASONE
     Indication: ADULT T-CELL LYMPHOMA/LEUKAEMIA
     Dosage: 40 MG ON DAYS 1 AND 8.
     Route: 042
  3. PREDNISOLONE. [Suspect]
     Active Substance: PREDNISOLONE
     Indication: ADULT T-CELL LYMPHOMA/LEUKAEMIA
     Dosage: 200 MG ON DAYS 2 AND 9
     Route: 048
  4. G-CSF [Suspect]
     Active Substance: FILGRASTIM
     Indication: ADULT T-CELL LYMPHOMA/LEUKAEMIA
     Dosage: 300 UG/DAY ON DAYS 4-6 AND AND 11-13
     Route: 058
  5. CISPLATIN. [Suspect]
     Active Substance: CISPLATIN
     Indication: ADULT T-CELL LYMPHOMA/LEUKAEMIA
     Dosage: 30 MG/M2 ON DAYS 1 AND 8

REACTIONS (1)
  - Chronic kidney disease [Unknown]
